FAERS Safety Report 24529098 (Version 1)
Quarter: 2024Q4

REPORT INFORMATION
  Report Type: Spontaneous
  Country: US (occurrence: None)
  Receive Date: 20241019
  Receipt Date: 20241019
  Transmission Date: 20250114
  Serious: Yes (Life-Threatening, Hospitalization, Disabling, Other)
  Sender: Public
  Company Number: None

PATIENT
  Sex: Female
  Weight: 117 kg

DRUGS (3)
  1. VRAYLAR [Suspect]
     Active Substance: CARIPRAZINE
     Indication: Affective disorder
     Route: 048
     Dates: start: 20240401, end: 20240707
  2. SEROQUEL [Concomitant]
     Active Substance: QUETIAPINE FUMARATE
  3. DEPRECATE [Concomitant]

REACTIONS (4)
  - Loss of consciousness [None]
  - Aggression [None]
  - Physical assault [None]
  - Anger [None]

NARRATIVE: CASE EVENT DATE: 20240707
